FAERS Safety Report 4838039-4 (Version None)
Quarter: 2005Q4

REPORT INFORMATION
  Report Type: 
  Country: None (occurrence: None)
  Receive Date: 20051128
  Receipt Date: 20051118
  Transmission Date: 20060501
  Serious: Yes (Death, Hospitalization)
  Sender: FDA-Public Use
  Company Number: NO-AVENTIS-200514393EU

PATIENT
  Age: 86 Year
  Sex: Female

DRUGS (7)
  1. ENOXAPARIN SODIUM [Suspect]
     Indication: MYOCARDIAL INFARCTION
     Route: 058
     Dates: start: 20050706, end: 20050710
  2. IMDUR [Concomitant]
  3. SIMVASTATIN [Concomitant]
  4. VITAMIN B-12 [Concomitant]
  5. ALBYL-E [Concomitant]
  6. NITROGLYCERIN [Concomitant]
  7. SELO-ZOK [Concomitant]

REACTIONS (3)
  - HAEMOGLOBIN DECREASED [None]
  - MYOCARDIAL INFARCTION [None]
  - PERITONEAL HAEMORRHAGE [None]
